FAERS Safety Report 16203738 (Version 1)
Quarter: 2019Q2

REPORT INFORMATION
  Report Type: Spontaneous
  Country: JP (occurrence: JP)
  Receive Date: 20190416
  Receipt Date: 20190416
  Transmission Date: 20190711
  Serious: Yes (Other)
  Sender: FDA-Public Use
  Company Number: PHHY2019JP086882

PATIENT
  Age: 80 Year
  Sex: Male

DRUGS (2)
  1. RIVASTACH [Suspect]
     Active Substance: RIVASTIGMINE
     Indication: PRODUCT USED FOR UNKNOWN INDICATION
     Route: 062
  2. RIVASTACH [Suspect]
     Active Substance: RIVASTIGMINE
     Dosage: 9.5 MG QD (PATCH 10 (CM2), 18 MG RIVASTIGMINE BASE)
     Route: 062

REACTIONS (4)
  - Somnolence [Unknown]
  - Blood pressure decreased [Unknown]
  - Cerebral haemorrhage [Unknown]
  - Product dose omission [Unknown]

NARRATIVE: CASE EVENT DATE: 20120102
